FAERS Safety Report 5470333-9 (Version None)
Quarter: 2007Q3

REPORT INFORMATION
  Report Type: 
  Country: None (occurrence: None)
  Receive Date: 20070925
  Receipt Date: 20070913
  Transmission Date: 20080115
  Serious: Yes (Hospitalization)
  Sender: FDA-Public Use
  Company Number: S07-BEL-02020-01

PATIENT
  Age: 23 Year
  Sex: Female

DRUGS (6)
  1. ESCITALOPRAM OXALATE [Suspect]
     Indication: ANXIETY
     Dosage: 10 MG BID PO
     Route: 048
     Dates: start: 20061101, end: 20061229
  2. ESCITALOPRAM OXALATE [Suspect]
     Indication: MAJOR DEPRESSION
     Dosage: 10 MG BID PO
     Route: 048
     Dates: start: 20061101, end: 20061229
  3. ESCITALOPRAM OXALATE [Suspect]
     Indication: ANXIETY
     Dosage: 10 MG QD PO
     Route: 048
     Dates: start: 20050101, end: 20061101
  4. ESCITALOPRAM OXALATE [Suspect]
     Indication: MAJOR DEPRESSION
     Dosage: 10 MG QD PO
     Route: 048
     Dates: start: 20050101, end: 20061101
  5. SPASMOMEN (OTILONIUM BROMIDE) [Concomitant]
  6. PERENTEROL FORTE (SACCHAROMYCES BOULARDII) [Concomitant]

REACTIONS (4)
  - RENAL FAILURE [None]
  - RHABDOMYOLYSIS [None]
  - SEROTONIN SYNDROME [None]
  - SYNCOPE [None]
